FAERS Safety Report 21616168 (Version 1)
Quarter: 2022Q4

REPORT INFORMATION
  Report Type: Report from Study
  Country: US (occurrence: US)
  Receive Date: 20221118
  Receipt Date: 20221118
  Transmission Date: 20230112
  Serious: Yes (Hospitalization, Other)
  Sender: FDA-Public Use
  Company Number: US-MALLINCKRODT-T202204477

PATIENT
  Sex: Female
  Weight: 86 kg

DRUGS (2)
  1. CORTICOTROPIN [Suspect]
     Active Substance: CORTICOTROPIN
     Indication: Sarcoidosis
     Dosage: UNK
     Route: 065
  2. INFLUENZA VIRUS VACCINE [Concomitant]
     Active Substance: INFLUENZA VIRUS VACCINE
     Indication: Product used for unknown indication
     Dosage: UNK
     Route: 065

REACTIONS (10)
  - Pancreatitis [Unknown]
  - Pneumonia [Unknown]
  - Joint range of motion decreased [Unknown]
  - Meniscopathy [Unknown]
  - Weight fluctuation [Unknown]
  - Vertigo [Unknown]
  - Weight increased [Unknown]
  - Depression [Not Recovered/Not Resolved]
  - Glycosylated haemoglobin increased [Unknown]
  - Drug ineffective [Unknown]
